FAERS Safety Report 15681820 (Version 2)
Quarter: 2018Q4

REPORT INFORMATION
  Report Type: Report from Study
  Country: TW (occurrence: TW)
  Receive Date: 20181203
  Receipt Date: 20181212
  Transmission Date: 20190205
  Serious: Yes (Hospitalization)
  Sender: FDA-Public Use
  Company Number: TW-TAKEDA-2018MPI016334

PATIENT
  Age: 72 Year
  Sex: Male
  Weight: 57 kg

DRUGS (8)
  1. REVLIMID [Concomitant]
     Active Substance: LENALIDOMIDE
     Indication: PLASMA CELL MYELOMA
     Dosage: 20 MG, UNK
     Route: 048
     Dates: start: 20170704, end: 20171024
  2. REVLIMID [Concomitant]
     Active Substance: LENALIDOMIDE
     Dosage: 25 MG, Q3WEEKS
     Route: 048
     Dates: start: 20180206
  3. DECADRON [Concomitant]
     Active Substance: DEXAMETHASONE
     Dosage: 20 MG, 1/WEEK
     Route: 048
     Dates: start: 20171025, end: 20180205
  4. DECADRON [Concomitant]
     Active Substance: DEXAMETHASONE
     Dosage: 20 MG, 1/WEEK
     Route: 048
     Dates: start: 20180206
  5. DECADRON [Concomitant]
     Active Substance: DEXAMETHASONE
     Indication: PLASMA CELL MYELOMA
     Dosage: 20 MG, UNK
     Route: 048
     Dates: start: 20170704, end: 20171024
  6. IXAZOMIB [Suspect]
     Active Substance: IXAZOMIB
     Indication: PLASMA CELL MYELOMA
     Dosage: 4 MG, 1/WEEK
     Route: 048
     Dates: start: 20180206
  7. REVLIMID [Concomitant]
     Active Substance: LENALIDOMIDE
     Dosage: 20 MG, UNK
     Route: 048
     Dates: start: 20171025, end: 20180205
  8. CYTOXAN [Concomitant]
     Active Substance: CYCLOPHOSPHAMIDE
     Indication: PLASMA CELL MYELOMA
     Dosage: 50 MG, QD
     Route: 048
     Dates: start: 20171025, end: 20180205

REACTIONS (1)
  - Pneumonia [Recovered/Resolved]

NARRATIVE: CASE EVENT DATE: 20180929
